FAERS Safety Report 24795057 (Version 1)
Quarter: 2024Q4

REPORT INFORMATION
  Report Type: Other
  Country: IN (occurrence: IN)
  Receive Date: 20241231
  Receipt Date: 20241231
  Transmission Date: 20250115
  Serious: Yes (Life-Threatening, Hospitalization, Other)
  Sender: B BRAUN
  Company Number: IN-B.Braun Medical Inc.-2168130

PATIENT
  Age: 56 Year
  Sex: Male

DRUGS (8)
  1. CEFUROXIME [Suspect]
     Active Substance: CEFUROXIME
     Indication: Prophylaxis
  2. ASPIRIN [Concomitant]
     Active Substance: ASPIRIN
  3. VECURONIUM [Concomitant]
     Active Substance: VECURONIUM BROMIDE
  4. ETOMIDATE [Concomitant]
     Active Substance: ETOMIDATE
  5. FENTANYL [Concomitant]
     Active Substance: FENTANYL
  6. ATORVASTATIN [Concomitant]
     Active Substance: ATORVASTATIN
  7. UNSPECIFIED INGREDIENT [Concomitant]
     Active Substance: UNSPECIFIED INGREDIENT
  8. UNSPECIFIED INGREDIENT [Concomitant]
     Active Substance: UNSPECIFIED INGREDIENT

REACTIONS (1)
  - Kounis syndrome [Recovered/Resolved]
